FAERS Safety Report 5016222-5 (Version None)
Quarter: 2006Q2

REPORT INFORMATION
  Report Type: 
  Country: None (occurrence: None)
  Receive Date: 20060414
  Receipt Date: 20060124
  Transmission Date: 20061013
  Serious: No
  Sender: FDA-Public Use
  Company Number: 2006SP000412

PATIENT
  Age: 48 Year
  Sex: Female
  Weight: 61.2356 kg

DRUGS (4)
  1. LUNESTA [Suspect]
     Indication: INSOMNIA
     Dosage: 2MG, HS; ORAL
     Route: 048
  2. PROCARDIA [Concomitant]
  3. WARFARIN SODIUM [Concomitant]
  4. TOPROL-XL [Concomitant]

REACTIONS (1)
  - DYSGEUSIA [None]
